FAERS Safety Report 4627082-6 (Version None)
Quarter: 2005Q1

REPORT INFORMATION
  Report Type: 
  Country: None (occurrence: None)
  Receive Date: 20050331
  Receipt Date: 20050316
  Transmission Date: 20050727
  Serious: Yes (Death, Hospitalization)
  Sender: FDA-Public Use
  Company Number: S04-USA-08058-01

PATIENT
  Age: 15 Year
  Sex: Female
  Weight: 61.2356 kg

DRUGS (3)
  1. CELEXA [Suspect]
     Indication: DEPRESSION
     Dosage: 20 MG QD PO
     Route: 048
     Dates: start: 20040212, end: 20040620
  2. CELEXA [Suspect]
     Indication: DEPRESSION
     Dosage: 40 MG QD PO
     Route: 048
     Dates: start: 20040621, end: 20040716
  3. LAMICTAL [Concomitant]

REACTIONS (17)
  - CARDIAC ARREST [None]
  - COMPLETED SUICIDE [None]
  - CRYING [None]
  - DRUG INEFFECTIVE [None]
  - EMOTIONAL DISORDER [None]
  - HEPATITIS C [None]
  - HIV INFECTION CDC GROUP I [None]
  - HIV INFECTION CDC GROUP II [None]
  - HYPOXIA [None]
  - INJURY ASPHYXIATION [None]
  - INSOMNIA [None]
  - MAJOR DEPRESSION [None]
  - NIGHTMARE [None]
  - RESPIRATORY ARREST [None]
  - SELF MUTILATION [None]
  - SKIN DISCOLOURATION [None]
  - SOMNOLENCE [None]
